FAERS Safety Report 7968857-5 (Version None)
Quarter: 2011Q4

REPORT INFORMATION
  Report Type: 
  Country: None (occurrence: None)
  Receive Date: 20111209
  Receipt Date: 20111202
  Transmission Date: 20120403
  Serious: Yes (Hospitalization, Other)
  Sender: FDA-Public Use
  Company Number: PHHY2011PT105717

PATIENT
  Age: 32 Year
  Sex: Male

DRUGS (5)
  1. HALOPERIDOL [Suspect]
     Indication: ABNORMAL BEHAVIOUR
     Dosage: 1 MG, UNK
  2. LEVOMEPROMAZINE [Concomitant]
  3. OLANZAPINE [Concomitant]
  4. QUETIAPINE [Concomitant]
  5. OXAZEPAM [Concomitant]

REACTIONS (19)
  - SLEEP DISORDER [None]
  - HYPOTENSION [None]
  - APATHY [None]
  - DIARRHOEA HAEMORRHAGIC [None]
  - COGNITIVE DISORDER [None]
  - TACHYCARDIA [None]
  - HYPERHIDROSIS [None]
  - DYSKINESIA [None]
  - ABNORMAL BEHAVIOUR [None]
  - ABDOMINAL DISTENSION [None]
  - COLITIS ISCHAEMIC [None]
  - ABDOMINAL PAIN [None]
  - AGGRESSION [None]
  - PSYCHOMOTOR HYPERACTIVITY [None]
  - PYREXIA [None]
  - NEUROLEPTIC MALIGNANT SYNDROME [None]
  - TACHYPNOEA [None]
  - MUSCLE RIGIDITY [None]
  - TREMOR [None]
